FAERS Safety Report 4725055-6 (Version None)
Quarter: 2005Q3

REPORT INFORMATION
  Report Type: 
  Country: None (occurrence: None)
  Receive Date: 20050721
  Receipt Date: 20050711
  Transmission Date: 20060218
  Serious: Yes (Life-Threatening, Hospitalization)
  Sender: FDA-Public Use
  Company Number: MK200507-0114-1

PATIENT
  Age: 42 Year
  Sex: Male

DRUGS (2)
  1. METHADOSE [Suspect]
     Indication: DEPENDENCE
     Dosage: 450 MG, Q D
  2. FLUVOXAMINE [Suspect]
     Dosage: 300 MG, Q D

REACTIONS (11)
  - DIZZINESS [None]
  - DRUG WITHDRAWAL SYNDROME [None]
  - ELECTROCARDIOGRAM QT CORRECTED INTERVAL PROLONGED [None]
  - FALL [None]
  - HEAD INJURY [None]
  - HEART RATE DECREASED [None]
  - LOSS OF CONSCIOUSNESS [None]
  - SYNCOPE [None]
  - TONIC CLONIC MOVEMENTS [None]
  - TORSADE DE POINTES [None]
  - VENTRICULAR TACHYCARDIA [None]
